FAERS Safety Report 22044852 (Version 1)
Quarter: 2023Q1

REPORT INFORMATION
  Report Type: Spontaneous
  Country: US (occurrence: None)
  Receive Date: 20230227
  Receipt Date: 20230227
  Transmission Date: 20230418
  Serious: Yes (Hospitalization, Disabling, Other)
  Sender: FDA-Public Use
  Company Number: None

PATIENT
  Age: 43 Year
  Sex: Female
  Weight: 45 kg

DRUGS (4)
  1. CIPROFLOXACIN [Suspect]
     Active Substance: CIPROFLOXACIN
     Indication: Urinary tract infection
     Dates: start: 20210915, end: 20210917
  2. ROCEPHIN [Suspect]
     Active Substance: CEFTRIAXONE SODIUM
  3. DECADRON [Suspect]
     Active Substance: DEXAMETHASONE
  4. METRONIDAZOLE [Suspect]
     Active Substance: METRONIDAZOLE

REACTIONS (11)
  - Pain [None]
  - Loss of personal independence in daily activities [None]
  - Weight decreased [None]
  - Arthralgia [None]
  - Nerve injury [None]
  - Myalgia [None]
  - Anxiety [None]
  - Asthenia [None]
  - Walking aid user [None]
  - Caregiver [None]
  - Quality of life decreased [None]

NARRATIVE: CASE EVENT DATE: 20201115
